FAERS Safety Report 5367978-3 (Version None)
Quarter: 2007Q2

REPORT INFORMATION
  Report Type: 
  Country: None (occurrence: None)
  Receive Date: 20070622
  Receipt Date: 20070613
  Transmission Date: 20071010
  Serious: Yes (Life-Threatening, Other)
  Sender: FDA-Public Use
  Company Number: JP-PFIZER INC-2007047547

PATIENT
  Age: 1 Year
  Sex: Female

DRUGS (11)
  1. CEFPODOXIME PROXETIL TABLET [Suspect]
     Indication: PNEUMONIA
  2. FLOMOXEF SODIUM [Suspect]
     Route: 042
     Dates: start: 20070510, end: 20070512
  3. ENTERONON R [Suspect]
     Indication: BRONCHITIS
     Route: 048
  4. MIDAZOLAM HCL [Suspect]
     Route: 042
     Dates: start: 20070505, end: 20070510
  5. THEOPHYLLINE [Concomitant]
     Indication: BRONCHITIS
     Route: 048
  6. MUCOSOLVAN [Concomitant]
     Indication: BRONCHITIS
     Route: 048
  7. PERIACTIN [Concomitant]
     Indication: BRONCHITIS
     Route: 048
  8. DIHYDROCODEINE PHOSPHATE [Concomitant]
     Indication: BRONCHITIS
     Route: 048
  9. MUCODYNE [Concomitant]
     Indication: BRONCHITIS
     Route: 048
  10. MEPTIN [Concomitant]
     Indication: BRONCHITIS
     Route: 048
  11. HOKUNALIN [Concomitant]
     Indication: BRONCHITIS

REACTIONS (2)
  - HEPATIC FUNCTION ABNORMAL [None]
  - RHABDOMYOLYSIS [None]
